FAERS Safety Report 15283926 (Version 7)
Quarter: 2019Q1

REPORT INFORMATION
  Report Type: Report from Study
  Country: RO (occurrence: RO)
  Receive Date: 20180816
  Receipt Date: 20190212
  Transmission Date: 20190417
  Serious: Yes (Other)
  Sender: FDA-Public Use
  Company Number: PHHY2017RO099306

PATIENT
  Age: 42 Year
  Sex: Female

DRUGS (2)
  1. SIGNIFOR [Suspect]
     Active Substance: PASIREOTIDE
     Indication: PITUITARY-DEPENDENT CUSHING^S SYNDROME
     Dosage: 1.8 MG, QD
     Route: 058
     Dates: start: 20170518
  2. SIGNIFOR [Suspect]
     Active Substance: PASIREOTIDE
     Indication: CARCINOID TUMOUR

REACTIONS (19)
  - Hyperglycaemia [Recovered/Resolved]
  - Hypoglycaemia [Recovered/Resolved]
  - Arthralgia [Unknown]
  - Cholelithiasis [Unknown]
  - Peripheral swelling [Recovered/Resolved]
  - Nausea [Recovered/Resolved]
  - Visual impairment [Unknown]
  - Liver disorder [Unknown]
  - Hepatic steatosis [Unknown]
  - Hyperthyroidism [Not Recovered/Not Resolved]
  - Ovarian cyst [Recovered/Resolved]
  - Haemangioma of liver [Unknown]
  - Alopecia [Recovered/Resolved]
  - Vertigo [Unknown]
  - Leukocytosis [Unknown]
  - Drug ineffective [Unknown]
  - Hyperuricaemia [Unknown]
  - Type 2 diabetes mellitus [Not Recovered/Not Resolved]
  - Mitral valve incompetence [Not Recovered/Not Resolved]

NARRATIVE: CASE EVENT DATE: 20170518
